FAERS Safety Report 9922751 (Version 2)
Quarter: 2014Q2

REPORT INFORMATION
  Report Type: Spontaneous
  Country: GB (occurrence: GB)
  Receive Date: 20140225
  Receipt Date: 20140415
  Transmission Date: 20141212
  Serious: Yes (Life-Threatening, Hospitalization, Disabling, Other)
  Sender: FDA-Public Use
  Company Number: GB-ACTAVIS-2014-02940

PATIENT
  Age: 69 Year
  Sex: Male
  Weight: 74 kg

DRUGS (12)
  1. MIRTAZAPINE (UNKNOWN) [Suspect]
     Indication: DEMENTIA
     Dosage: 45 MG, UNKNOWN
     Route: 048
     Dates: start: 2012
  2. OLANZAPINE (UNKNOWN) [Suspect]
     Indication: PRODUCT USED FOR UNKNOWN INDICATION
     Dosage: 10 MG, DAILY
     Route: 048
     Dates: start: 2012
  3. CLONAZEPAM (UNKNOWN) [Suspect]
     Indication: AGGRESSION
     Dosage: 1 MG, QHS
     Route: 048
     Dates: start: 2012
  4. EPILIM [Suspect]
     Indication: MOOD ALTERED
     Dosage: 400 MG, BID
     Route: 048
     Dates: start: 2012
  5. OMEPRAZOLE [Concomitant]
     Indication: PRODUCT USED FOR UNKNOWN INDICATION
     Dosage: 40 MG, DAILY
     Route: 065
  6. ATORVASTATIN [Concomitant]
     Indication: PRODUCT USED FOR UNKNOWN INDICATION
     Dosage: 40 MG, DAILY
     Route: 065
  7. FYBOGEL [Concomitant]
     Indication: PRODUCT USED FOR UNKNOWN INDICATION
     Dosage: 1 DF, DAILY
     Route: 065
  8. ALFUZOSIN HYDROCHLORIDE [Concomitant]
     Indication: PRODUCT USED FOR UNKNOWN INDICATION
     Dosage: 10 MG, DAILY
     Route: 065
  9. ISOSORBIDE MONONITRATE [Concomitant]
     Indication: PRODUCT USED FOR UNKNOWN INDICATION
     Dosage: 60 MG, DAILY; MODIFIED RELEASE
     Route: 065
  10. IVABRADINE [Concomitant]
     Indication: PRODUCT USED FOR UNKNOWN INDICATION
     Dosage: 5 MG, BID
     Route: 065
  11. CLOPIDOGREL [Concomitant]
     Indication: PRODUCT USED FOR UNKNOWN INDICATION
     Dosage: 75 MG, DAILY
     Route: 065
  12. ASPIRIN [Concomitant]
     Indication: PRODUCT USED FOR UNKNOWN INDICATION
     Dosage: 75 MG, DAILY
     Route: 065

REACTIONS (3)
  - Hyponatraemia [Recovered/Resolved]
  - Convulsion [Recovered/Resolved]
  - Dehydration [Recovered/Resolved]
